FAERS Safety Report 8289676-9 (Version None)
Quarter: 2012Q2

REPORT INFORMATION
  Report Type: 
  Country: None (occurrence: None)
  Receive Date: 20120417
  Receipt Date: 20120412
  Transmission Date: 20120825
  Serious: Yes (Hospitalization, Other)
  Sender: FDA-Public Use
  Company Number: US-BAYER-2012-036014

PATIENT
  Sex: Male

DRUGS (2)
  1. AVELOX [Suspect]
     Indication: SINUSITIS
     Dosage: 400 MG, QD
     Route: 048
     Dates: start: 20110501
  2. IBUPROFEN (ADVIL) [Concomitant]

REACTIONS (3)
  - SKIN BURNING SENSATION [None]
  - ANAPHYLACTIC REACTION [None]
  - URTICARIA [None]
